FAERS Safety Report 14114578 (Version 1)
Quarter: 2017Q4

REPORT INFORMATION
  Report Type: Spontaneous
  Country: GB (occurrence: GB)
  Receive Date: 20171023
  Receipt Date: 20171023
  Transmission Date: 20180321
  Serious: Yes (Hospitalization)
  Sender: FDA-Public Use
  Company Number: GB-TEVA-816186ACC

PATIENT
  Age: 81 Year

DRUGS (6)
  1. FEBUXOSTAT. [Concomitant]
     Active Substance: FEBUXOSTAT
  2. HYPROMELLOSE [Concomitant]
     Active Substance: HYPROMELLOSES
     Route: 047
  3. WARFARIN [Suspect]
     Active Substance: WARFARIN
     Route: 048
     Dates: end: 20170911
  4. PARACETAMOL [Concomitant]
     Active Substance: ACETAMINOPHEN
  5. COLCHICINE. [Suspect]
     Active Substance: COLCHICINE
     Indication: GOUT
     Route: 048
     Dates: start: 20170908, end: 20170911
  6. BISOPROLOL [Concomitant]
     Active Substance: BISOPROLOL

REACTIONS (3)
  - Gastrointestinal ulcer [Unknown]
  - Gastrointestinal haemorrhage [Recovered/Resolved]
  - International normalised ratio increased [Unknown]

NARRATIVE: CASE EVENT DATE: 20170908
